FAERS Safety Report 5566919-3 (Version None)
Quarter: 2007Q4

REPORT INFORMATION
  Report Type: 
  Country: None (occurrence: None)
  Receive Date: 20071219
  Receipt Date: 20070208
  Transmission Date: 20080405
  Serious: No
  Sender: FDA-Public Use
  Company Number: US-BRISTOL-MYERS SQUIBB COMPANY-13674072

PATIENT
  Age: 72 Year
  Sex: Female
  Weight: 75 kg

DRUGS (6)
  1. PRAVACHOL [Suspect]
     Indication: BLOOD CHOLESTEROL INCREASED
     Route: 048
  2. BENICAR [Concomitant]
  3. LEVOTHYROXINE SODIUM [Concomitant]
  4. ALLOPURINOL [Concomitant]
  5. CALCITONIN-SALMON [Concomitant]
  6. MOTRIN [Concomitant]

REACTIONS (1)
  - MYALGIA [None]
